FAERS Safety Report 17719627 (Version 1)
Quarter: 2020Q2

REPORT INFORMATION
  Report Type: Spontaneous
  Country: ES (occurrence: ES)
  Receive Date: 20200428
  Receipt Date: 20200428
  Transmission Date: 20200714
  Serious: Yes (Hospitalization)
  Sender: FDA-Public Use
  Company Number: NVSC2020ES111551

PATIENT
  Age: 84 Year
  Sex: Male

DRUGS (2)
  1. BRILIQUE [Interacting]
     Active Substance: TICAGRELOR
     Indication: ACUTE MYOCARDIAL INFARCTION
     Dosage: 90 MG, Q12H (90 MG COMPRIMIDOS BUCODISPERSABLES, 56 COMPRIMIDOS)
     Route: 048
     Dates: start: 20190621
  2. ATORVASTATIN [Suspect]
     Active Substance: ATORVASTATIN
     Indication: HYPERCHOLESTEROLAEMIA
     Dosage: 80 MG, Q24H (80 MG, 28 COMPRIMIDOS)
     Route: 048
     Dates: start: 20190621, end: 20191217

REACTIONS (3)
  - Acute kidney injury [Recovered/Resolved]
  - Mixed liver injury [Recovered/Resolved]
  - Rhabdomyolysis [Recovered/Resolved]

NARRATIVE: CASE EVENT DATE: 20191218
